FAERS Safety Report 7024532-5 (Version None)
Quarter: 2010Q4

REPORT INFORMATION
  Report Type: 
  Country: None (occurrence: None)
  Receive Date: 20101001
  Receipt Date: 20100921
  Transmission Date: 20110411
  Serious: Yes (Hospitalization)
  Sender: FDA-Public Use
  Company Number: B0676467A

PATIENT
  Age: 37 Year
  Sex: Female
  Weight: 74 kg

DRUGS (2)
  1. FLOLAN [Suspect]
     Indication: PULMONARY HYPERTENSION
     Route: 042
  2. PROSTAGLANDIN [Suspect]
     Indication: PULMONARY HYPERTENSION
     Route: 042

REACTIONS (3)
  - BLOOD PRESSURE SYSTOLIC DECREASED [None]
  - OLIGURIA [None]
  - PULMONARY ARTERIAL WEDGE PRESSURE ABNORMAL [None]
